FAERS Safety Report 12443266 (Version 2)
Quarter: 2016Q2

REPORT INFORMATION
  Report Type: Spontaneous
  Country: US (occurrence: US)
  Receive Date: 20160607
  Receipt Date: 20160608
  Transmission Date: 20160815
  Serious: Yes (Hospitalization)
  Sender: FDA-Public Use
  Company Number: US-SHIRE-US201606834

PATIENT
  Age: 56 Year
  Sex: Female
  Weight: 55.78 kg

DRUGS (1)
  1. GATTEX [Suspect]
     Active Substance: TEDUGLUTIDE\WATER
     Indication: SHORT-BOWEL SYNDROME
     Dosage: 0.228 ML, 1X/DAY:QD
     Route: 058
     Dates: start: 20160428, end: 20160528

REACTIONS (1)
  - Obstruction [Unknown]

NARRATIVE: CASE EVENT DATE: 201605
